FAERS Safety Report 8175429-9 (Version None)
Quarter: 2012Q1

REPORT INFORMATION
  Report Type: 
  Country: None (occurrence: None)
  Receive Date: 20120229
  Receipt Date: 20120221
  Transmission Date: 20120608
  Serious: Yes (Other)
  Sender: FDA-Public Use
  Company Number: AU-ASTRAZENECA-2012SE12383

PATIENT
  Age: 78 Year
  Sex: Male
  Weight: 86 kg

DRUGS (3)
  1. ATACAND HCT [Suspect]
     Dosage: 16/12.5 MG
     Route: 048
     Dates: start: 20111129
  2. ASTRIX 100 [Concomitant]
  3. LIPITOR [Concomitant]
     Indication: METABOLIC DISORDER
     Dates: start: 20060429

REACTIONS (1)
  - LEUKOCYTOCLASTIC VASCULITIS [None]
